FAERS Safety Report 7550186-5 (Version None)
Quarter: 2011Q2

REPORT INFORMATION
  Report Type: 
  Country: None (occurrence: None)
  Receive Date: 20110615
  Receipt Date: 20110531
  Transmission Date: 20111010
  Serious: Yes (Death, Hospitalization, Other)
  Sender: FDA-Public Use
  Company Number: JO-WATSON-2011-08151

PATIENT
  Age: 40 Year
  Sex: Female

DRUGS (4)
  1. VENLAFAXINE HCL [Suspect]
     Indication: MAJOR DEPRESSION
     Dosage: UNK
  2. LAMOTRIGINE [Suspect]
     Indication: MAJOR DEPRESSION
     Dosage: UNK
  3. MIRTAZAPINE [Suspect]
     Indication: MAJOR DEPRESSION
     Dosage: UNK
  4. QUETIAPINE [Suspect]
     Indication: MAJOR DEPRESSION
     Dosage: UNK

REACTIONS (7)
  - PHARYNGITIS [None]
  - NEUTROPENIA [None]
  - SEPTIC SHOCK [None]
  - CELLULITIS [None]
  - CONVULSION [None]
  - MULTI-ORGAN FAILURE [None]
  - CARDIAC ARREST [None]
